FAERS Safety Report 8154073-3 (Version None)
Quarter: 2012Q1

REPORT INFORMATION
  Report Type: 
  Country: None (occurrence: None)
  Receive Date: 20120215
  Receipt Date: 20120131
  Transmission Date: 20120608
  Serious: Yes (Hospitalization)
  Sender: FDA-Public Use
  Company Number: 2012SGN00042

PATIENT
  Age: 71 Year
  Sex: Female
  Weight: 112.9 kg

DRUGS (17)
  1. FISH OIL (FISH OIL) [Concomitant]
  2. LIPITOR [Concomitant]
  3. LEVOTHYROXINE SODIUM [Concomitant]
  4. CALCIUM (CALCIUM GLUBIONATE) [Concomitant]
  5. CLARITIN [Concomitant]
  6. METFORMIN HYDROCHLORIDE [Concomitant]
  7. COREG [Concomitant]
  8. VITAMIN D [Concomitant]
  9. HYZAAR [Concomitant]
  10. JANUVIA [Concomitant]
  11. LANTUS [Concomitant]
  12. LASIX [Concomitant]
  13. BRENTUXIMAB VEDOTIN (BRENTUXIMAB VEDOTIN) INJECTION [Suspect]
     Indication: SMALL CELL LUNG CANCER STAGE UNSPECIFIED
     Dosage: 1.8 MG/KG, Q21D, INTRAVENOUS
     Route: 042
     Dates: start: 20120116, end: 20120116
  14. ASPIRIN [Concomitant]
  15. COQ10 (UBIDECARENONE) [Concomitant]
  16. GLIMEPIRIDE [Concomitant]
  17. NOVOLOG [Concomitant]

REACTIONS (3)
  - FLUID RETENTION [None]
  - DYSPNOEA [None]
  - HYPOXIA [None]
